FAERS Safety Report 4446893-3 (Version None)
Quarter: 2004Q3

REPORT INFORMATION
  Report Type: 
  Country: None (occurrence: None)
  Receive Date: 20040908
  Receipt Date: 20040820
  Transmission Date: 20050211
  Serious: Yes (Life-Threatening, Other)
  Sender: FDA-Public Use
  Company Number: MAG-2004-0000283

PATIENT
  Age: 71 Year
  Sex: Female

DRUGS (1)
  1. POVIDONE IODINE [Suspect]
     Indication: ANTI-INFECTIVE THERAPY
     Dosage: 50 ML, SINGLE, TOPICAL
     Route: 061
     Dates: start: 20040713, end: 20040713

REACTIONS (5)
  - BLOOD PRESSURE DECREASED [None]
  - CARDIAC ARREST [None]
  - ERYTHEMA [None]
  - HEART RATE DECREASED [None]
  - VENTRICULAR FIBRILLATION [None]
